FAERS Safety Report 8066528-0 (Version None)
Quarter: 2012Q1

REPORT INFORMATION
  Report Type: 
  Country: None (occurrence: None)
  Receive Date: 20120124
  Receipt Date: 20120112
  Transmission Date: 20120608
  Serious: Yes (Other)
  Sender: FDA-Public Use
  Company Number: PHHY2009CA41710

PATIENT
  Sex: Male

DRUGS (2)
  1. SANDOSTATIN LAR [Suspect]
     Dosage: 30 MG, QMO
     Route: 030
  2. SANDOSTATIN LAR [Suspect]
     Indication: METASTATIC NEOPLASM
     Dosage: 30 MG EVERY 4 WEEKS
     Route: 030
     Dates: start: 20090825

REACTIONS (15)
  - SYNCOPE [None]
  - FALL [None]
  - HAEMOGLOBIN DECREASED [None]
  - HOT FLUSH [None]
  - MALAISE [None]
  - BLOOD PRESSURE DIASTOLIC DECREASED [None]
  - INJECTION SITE ERYTHEMA [None]
  - NAUSEA [None]
  - FLUSHING [None]
  - INJECTION SITE MASS [None]
  - ASTHENIA [None]
  - DIARRHOEA [None]
  - HEART RATE INCREASED [None]
  - DIZZINESS [None]
  - CONTUSION [None]
